FAERS Safety Report 18325273 (Version 2)
Quarter: 2020Q4

REPORT INFORMATION
  Report Type: Report from Study
  Country: US (occurrence: US)
  Receive Date: 20200929
  Receipt Date: 20201009
  Transmission Date: 20210113
  Serious: Yes (Hospitalization, Other)
  Sender: FDA-Public Use
  Company Number: US-JNJFOC-A-NJ2020-207104

PATIENT
  Age: 59 Year
  Sex: Female
  Weight: 54.42 kg

DRUGS (2)
  1. VELETRI [Suspect]
     Active Substance: EPOPROSTENOL
     Indication: PULMONARY ARTERIAL HYPERTENSION
     Dosage: 24.85 NG/KG, PER MIN
     Route: 042
  2. LETAIRIS [Concomitant]
     Active Substance: AMBRISENTAN

REACTIONS (11)
  - COVID-19 [Unknown]
  - Device related infection [Unknown]
  - Diarrhoea [Unknown]
  - Herpes zoster [Unknown]
  - Headache [Unknown]
  - Vascular device infection [Unknown]
  - Pyrexia [Unknown]
  - Therapy change [Unknown]
  - Gastric disorder [Unknown]
  - Asthenia [Unknown]
  - Decreased appetite [Unknown]
